APPROVED DRUG PRODUCT: LORATADINE
Active Ingredient: LORATADINE
Strength: 10MG
Dosage Form/Route: TABLET;ORAL
Application: A075790 | Product #001
Applicant: PHARMOBEDIENT CONSULTING LLC
Approved: Nov 7, 2008 | RLD: No | RS: No | Type: DISCN